FAERS Safety Report 4903513-9 (Version None)
Quarter: 2006Q1

REPORT INFORMATION
  Report Type: 
  Country: None (occurrence: None)
  Receive Date: 20060203
  Receipt Date: 20060125
  Transmission Date: 20060701
  Serious: Yes (Other)
  Sender: FDA-Public Use
  Company Number: B0408567A

PATIENT
  Age: 36 Year
  Sex: Male

DRUGS (4)
  1. EPIVIR [Suspect]
     Indication: HIV INFECTION
     Dosage: 150 MG TWICE PER DAY
     Dates: start: 19991201
  2. INDINIVIR SULFATE [Suspect]
     Indication: HIV INFECTION
     Dosage: 800 MG THREE TIMES PER DAY
     Dates: start: 19991201
  3. STAVUDINE [Suspect]
     Indication: HIV INFECTION
     Dosage: 40 MG TWICE PER DAY
     Dates: start: 19991201
  4. FLUCONAZOLE [Concomitant]

REACTIONS (6)
  - COUGH [None]
  - CRYPTOCOCCOSIS [None]
  - IMMUNE RECONSTITUTION SYNDROME [None]
  - LYMPHADENITIS BACTERIAL [None]
  - NECROTISING GRANULOMATOUS LYMPHADENITIS [None]
  - PYREXIA [None]
